FAERS Safety Report 19150621 (Version 3)
Quarter: 2021Q2

REPORT INFORMATION
  Report Type: Other
  Country: US (occurrence: US)
  Receive Date: 20210418
  Receipt Date: 20210508
  Transmission Date: 20210717
  Serious: Yes (Other)
  Sender: FDA-Public Use
  Company Number: US-ROCHE-2811216

PATIENT
  Sex: Female

DRUGS (19)
  1. ESBRIET [Suspect]
     Active Substance: PIRFENIDONE
     Indication: PULMONARY FIBROSIS
     Dosage: TAKE 3 CAPSULES BY MOUTH 3 TIMES A DAY
     Route: 048
     Dates: start: 20210225
  2. VITAMIN D [COLECALCIFEROL] [Concomitant]
     Active Substance: CHOLECALCIFEROL
     Dosage: TAKE 5000 UNIT BY MOUTH ONCE DAILY
     Route: 048
  3. FLUZONE HIGH DOSE QUADRIVALENT [Concomitant]
     Dosage: ADM 0.5 ML IM UTD
     Dates: start: 20201015
  4. ACCUNEB [Concomitant]
     Active Substance: ALBUTEROL SULFATE
     Dates: start: 20210224, end: 20210224
  5. PATADAY [Concomitant]
     Active Substance: OLOPATADINE HYDROCHLORIDE
     Dosage: PLACE 1 DROP IN BOTH EYES EVERY MORNING
  6. LIORESAL [Concomitant]
     Active Substance: BACLOFEN
     Dates: start: 20200308
  7. LEVAQUIN [Concomitant]
     Active Substance: LEVOFLOXACIN
     Route: 048
     Dates: start: 20210218, end: 20210228
  8. ZOVIRAX [Concomitant]
     Active Substance: ACYCLOVIR
     Route: 048
     Dates: start: 20210221, end: 20210225
  9. COLACE [Concomitant]
     Active Substance: DOCUSATE SODIUM
     Dosage: TAKE 100 MG BY MOUTH 2 TIMES DAILY AS NEEDED.
     Route: 048
     Dates: start: 20170811
  10. FLONASE [Concomitant]
     Active Substance: FLUTICASONE PROPIONATE
     Dosage: PATIENT NOT TAKING
     Route: 045
     Dates: start: 20190319
  11. ELOCON [Concomitant]
     Active Substance: MOMETASONE FUROATE
     Dosage: MIX IN JAR OF CERAVE CREAM AND AAA QD ? BID
     Dates: start: 20190617
  12. MELATONIN [Concomitant]
     Active Substance: MELATONIN
     Route: 048
     Dates: start: 20191020
  13. NEILMED SINUS RINSE [Concomitant]
     Active Substance: SODIUM BICARBONATE\SODIUM CHLORIDE
     Dosage: USE WHENEVER FEEL MUCOUS IN NOSE OR SINUSES
     Dates: start: 20190801
  14. LEXAPRO [Concomitant]
     Active Substance: ESCITALOPRAM OXALATE
     Route: 048
     Dates: start: 20201020
  15. SYNTHROID [Concomitant]
     Active Substance: LEVOTHYROXINE SODIUM
     Route: 048
     Dates: start: 20210224
  16. NEURONTIN [Concomitant]
     Active Substance: GABAPENTIN
     Dates: start: 20200308
  17. PSYLLIUM HUSK. [Concomitant]
     Active Substance: PSYLLIUM HUSK
     Route: 048
     Dates: start: 20200313
  18. MAGNESIUM GLYCINATE [Concomitant]
     Active Substance: MAGNESIUM GLYCINATE
     Route: 048
  19. FIBER LAXATIVE [Concomitant]
     Active Substance: CALCIUM POLYCARBOPHIL
     Route: 048
     Dates: start: 20200313

REACTIONS (2)
  - COVID-19 [Recovered/Resolved]
  - Pulmonary embolism [Unknown]
